FAERS Safety Report 12451261 (Version 1)
Quarter: 2016Q2

REPORT INFORMATION
  Report Type: Spontaneous
  Country: US (occurrence: None)
  Receive Date: 20160608
  Receipt Date: 20160608
  Transmission Date: 20160815
  Serious: Yes (Disabling)
  Sender: FDA-Public Use
  Company Number: None

PATIENT
  Age: 71 Year
  Sex: Female
  Weight: 90.72 kg

DRUGS (8)
  1. CPAP [Concomitant]
     Active Substance: DEVICE
  2. KRILL OIL [Concomitant]
     Active Substance: DIETARY SUPPLEMENT
  3. LEVOTHYROXINE. [Concomitant]
     Active Substance: LEVOTHYROXINE
  4. HUMALG 75/25 [Concomitant]
  5. VALSARTAN 320 MG MYLAN [Suspect]
     Active Substance: VALSARTAN
     Indication: HYPERTENSION
     Dosage: X1 DAILY 1 PILL DAILY BY MOUTH
     Route: 048
     Dates: start: 20160128
  6. ATENOLOL. [Suspect]
     Active Substance: ATENOLOL
  7. TUMS [Concomitant]
     Active Substance: CALCIUM CARBONATE
  8. PREMARIN [Concomitant]
     Active Substance: ESTROGENS, CONJUGATED

REACTIONS (17)
  - Urinary incontinence [None]
  - Back pain [None]
  - Fatigue [None]
  - Heart rate increased [None]
  - Headache [None]
  - Dyspnoea [None]
  - Abdominal distension [None]
  - Asthenia [None]
  - Myalgia [None]
  - Pollakiuria [None]
  - Abdominal pain upper [None]
  - Paraesthesia [None]
  - Oedema peripheral [None]
  - Pruritus [None]
  - Rash [None]
  - Hypoaesthesia [None]
  - Frequent bowel movements [None]
